FAERS Safety Report 6577003-4 (Version None)
Quarter: 2010Q1

REPORT INFORMATION
  Report Type: 
  Country: None (occurrence: None)
  Receive Date: 20100210
  Receipt Date: 20100204
  Transmission Date: 20100710
  Serious: Yes (Hospitalization)
  Sender: FDA-Public Use
  Company Number: GXKR2010GB01535

PATIENT
  Age: 62 Year
  Sex: Male
  Weight: 71 kg

DRUGS (9)
  1. CEFTRIAXONE [Suspect]
     Indication: ENDOCARDITIS
     Dosage: 2 G, UNK
     Route: 042
     Dates: start: 20091225
  2. ACETYLSALICYLIC ACID [Concomitant]
  3. BENZYLPENICILLIN [Concomitant]
     Dosage: UNK
     Dates: start: 20091218, end: 20091224
  4. BISOPROLOL [Concomitant]
  5. GENTAMICIN [Concomitant]
     Dosage: UNK
     Dates: start: 20091219, end: 20091222
  6. LACTULOSE [Concomitant]
  7. MEROPENEM [Concomitant]
     Dosage: UNK
     Dates: start: 20091219, end: 20091224
  8. OMEPRAZOLE [Concomitant]
  9. SENNA [Concomitant]

REACTIONS (4)
  - CHILLS [None]
  - HYPOTENSION [None]
  - PYREXIA [None]
  - TREMOR [None]
